FAERS Safety Report 4358713-6 (Version None)
Quarter: 2004Q2

REPORT INFORMATION
  Report Type: 
  Country: None (occurrence: None)
  Receive Date: 20040517
  Receipt Date: 20030130
  Transmission Date: 20050107
  Serious: Yes (Other)
  Sender: FDA-Public Use
  Company Number: PHEH2003US01134

PATIENT
  Age: 61 Year
  Sex: Female

DRUGS (6)
  1. AREDIA [Suspect]
     Indication: MULTIPLE MYELOMA
     Dosage: UNK/UNK
  2. CHEMOTHERAPEUTICS,OTHER [Concomitant]
  3. LIPITOR [Concomitant]
     Dosage: 40 MG, QD
  4. PLAVIX [Concomitant]
     Dosage: 75 MG, QD
  5. THALIDOMIDE [Concomitant]
     Dosage: 100 MG, UNK
  6. INTERFERON [Concomitant]

REACTIONS (6)
  - CHRONIC SINUSITIS [None]
  - FISTULA [None]
  - OSTECTOMY [None]
  - OSTEOMYELITIS [None]
  - OSTEONECROSIS [None]
  - WOUND DEBRIDEMENT [None]
